FAERS Safety Report 7325584-5 (Version None)
Quarter: 2011Q1

REPORT INFORMATION
  Report Type: 
  Country: None (occurrence: None)
  Receive Date: 20110302
  Receipt Date: 20110225
  Transmission Date: 20110831
  Serious: Yes (Life-Threatening, Hospitalization)
  Sender: FDA-Public Use
  Company Number: CH-BAYER-2011-017412

PATIENT
  Sex: Female
  Weight: 55 kg

DRUGS (1)
  1. YAZ [Suspect]
     Indication: CONTRACEPTION
     Route: 048

REACTIONS (3)
  - HYPOXIC-ISCHAEMIC ENCEPHALOPATHY [None]
  - PULMONARY EMBOLISM [None]
  - CIRCULATORY COLLAPSE [None]
